FAERS Safety Report 22008266 (Version 2)
Quarter: 2023Q1

REPORT INFORMATION
  Report Type: Other
  Country: US (occurrence: None)
  Receive Date: 20230219
  Receipt Date: 20230316
  Transmission Date: 20230417
  Serious: Yes (Hospitalization, Other)
  Sender: FDA-Public Use
  Company Number: US-ROCHE-3287547

PATIENT
  Age: 73 Year
  Sex: Female

DRUGS (1)
  1. ALECENSA [Suspect]
     Active Substance: ALECTINIB HYDROCHLORIDE
     Indication: Lung neoplasm malignant
     Dosage: TAKE 3 CAPSULE(S) BY MOUTH TWICE A DAY WITH FOOD
     Route: 048

REACTIONS (3)
  - Pneumonia [Unknown]
  - Pulmonary fibrosis [Unknown]
  - Pleural effusion [Unknown]
